FAERS Safety Report 7487956-8 (Version None)
Quarter: 2011Q2

REPORT INFORMATION
  Report Type: 
  Country: None (occurrence: None)
  Receive Date: 20110511
  Receipt Date: 20110502
  Transmission Date: 20111010
  Serious: Yes (Other)
  Sender: FDA-Public Use
  Company Number: 1000020675

PATIENT
  Age: 51 Year
  Sex: Male

DRUGS (1)
  1. ESCITALOPRAM [Suspect]
     Dosage: 20 MG (10 MG,2 IN 1 D)

REACTIONS (3)
  - KETOACIDOSIS [None]
  - COMA [None]
  - RASH [None]
